FAERS Safety Report 10153291 (Version 3)
Quarter: 2014Q2

REPORT INFORMATION
  Report Type: Report from Study
  Country: DE (occurrence: DE)
  Receive Date: 20140505
  Receipt Date: 20140613
  Transmission Date: 20141212
  Serious: Yes (Hospitalization, Other)
  Sender: FDA-Public Use
  Company Number: PHHY2014DE035831

PATIENT
  Sex: 0

DRUGS (4)
  1. AMN107 [Suspect]
     Indication: GASTROINTESTINAL STROMAL TUMOUR
     Dosage: 800 MG, QD
     Route: 048
     Dates: start: 200902
  2. ACETYLSALICYLIC ACID [Suspect]
     Indication: HEART RATE IRREGULAR
     Dosage: 100 MG, QD
  3. ACETYLSALICYLIC ACID [Suspect]
     Dosage: 100 MG, QD
  4. CITALOPRAM [Suspect]
     Dosage: UNK

REACTIONS (6)
  - Heart rate irregular [Recovered/Resolved]
  - Metastasis [Unknown]
  - Basedow^s disease [Unknown]
  - Thyroiditis [Unknown]
  - Hypertension [Unknown]
  - Intestinal haemorrhage [Unknown]
